FAERS Safety Report 24459497 (Version 1)
Quarter: 2024Q4

REPORT INFORMATION
  Report Type: Spontaneous
  Country: ZA (occurrence: ZA)
  Receive Date: 20241018
  Receipt Date: 20241018
  Transmission Date: 20250114
  Serious: No
  Sender: ROCHE
  Company Number: ZA-ROCHE-3551670

PATIENT
  Age: 48 Year
  Sex: Female

DRUGS (3)
  1. MABTHERA [Suspect]
     Active Substance: RITUXIMAB
     Indication: Product used for unknown indication
     Route: 065
     Dates: start: 20180426
  2. CHLOROQUINE [Concomitant]
     Active Substance: CHLOROQUINE
     Dates: start: 20150610
  3. ARAVA [Concomitant]
     Active Substance: LEFLUNOMIDE
     Dates: start: 20160512

REACTIONS (2)
  - Drug ineffective [Unknown]
  - No adverse event [Unknown]
